FAERS Safety Report 16786774 (Version 1)
Quarter: 2019Q3

REPORT INFORMATION
  Report Type: Spontaneous
  Country: US (occurrence: US)
  Receive Date: 20190909
  Receipt Date: 20190909
  Transmission Date: 20191005
  Serious: Yes (Other)
  Sender: FDA-Public Use
  Company Number: US-ROCHE-2396955

PATIENT
  Age: 62 Year
  Sex: Female

DRUGS (3)
  1. ACTEMRA [Suspect]
     Active Substance: TOCILIZUMAB
     Indication: PRODUCT USED FOR UNKNOWN INDICATION
     Route: 058
  2. HUMIRA [Suspect]
     Active Substance: ADALIMUMAB
     Indication: RHEUMATOID ARTHRITIS
     Route: 058
     Dates: start: 2010
  3. ENBREL [Concomitant]
     Active Substance: ETANERCEPT

REACTIONS (4)
  - Drug ineffective [Unknown]
  - Vaginal haemorrhage [Recovering/Resolving]
  - Inflammation [Not Recovered/Not Resolved]
  - Vaginal discharge [Recovering/Resolving]

NARRATIVE: CASE EVENT DATE: 201907
